FAERS Safety Report 15989045 (Version 1)
Quarter: 2019Q1

REPORT INFORMATION
  Report Type: Spontaneous
  Country: US (occurrence: US)
  Receive Date: 20190221
  Receipt Date: 20190221
  Transmission Date: 20190418
  Serious: No
  Sender: FDA-Public Use
  Company Number: US-HORIZON-DUE-0091-2019

PATIENT
  Age: 55 Year
  Sex: Female

DRUGS (7)
  1. LISINOPRIL. [Concomitant]
     Active Substance: LISINOPRIL
  2. LEVOTHYROXINE. [Concomitant]
     Active Substance: LEVOTHYROXINE
  3. HYDROCODONE [Concomitant]
     Active Substance: HYDROCODONE
  4. NEURONTIN [Concomitant]
     Active Substance: GABAPENTIN
  5. HYDROXYZINE [Concomitant]
     Active Substance: HYDROXYZINE HYDROCHLORIDE
  6. ATORVASTATIN [Concomitant]
     Active Substance: ATORVASTATIN
  7. DUEXIS [Suspect]
     Active Substance: FAMOTIDINE\IBUPROFEN
     Indication: ARTHRALGIA
     Dosage: 1 TAB QD

REACTIONS (4)
  - Off label use [Unknown]
  - Therapy cessation [Not Recovered/Not Resolved]
  - Product supply issue [Not Recovered/Not Resolved]
  - Pain [Not Recovered/Not Resolved]
